FAERS Safety Report 4952551-9 (Version None)
Quarter: 2006Q1

REPORT INFORMATION
  Report Type: 
  Country: None (occurrence: None)
  Receive Date: 20060323
  Receipt Date: 20050315
  Transmission Date: 20060701
  Serious: Yes (Other)
  Sender: FDA-Public Use
  Company Number: US-MERCK-0503USA03239

PATIENT
  Age: 72 Year
  Sex: Female
  Weight: 63 kg

DRUGS (5)
  1. VIOXX [Suspect]
     Indication: ARTHRITIS
     Route: 048
     Dates: start: 20020611, end: 20041015
  2. LIPITOR [Concomitant]
     Route: 065
  3. PLAVIX [Concomitant]
     Route: 065
  4. MICARDIS [Concomitant]
     Route: 065
  5. GLUCOPHAGE [Concomitant]
     Route: 065

REACTIONS (12)
  - ADVERSE EVENT [None]
  - CARDIAC DISORDER [None]
  - CARDIAC FAILURE [None]
  - CEREBROVASCULAR ACCIDENT [None]
  - CHEST PAIN [None]
  - HEART RATE IRREGULAR [None]
  - HEPATOCELLULAR DAMAGE [None]
  - INTRACARDIAC THROMBUS [None]
  - MYOCARDIAL INFARCTION [None]
  - RENAL DISORDER [None]
  - THROMBOSIS [None]
  - ULCER [None]
